FAERS Safety Report 7756182-7 (Version None)
Quarter: 2011Q3

REPORT INFORMATION
  Report Type: 
  Country: None (occurrence: None)
  Receive Date: 20110914
  Receipt Date: 20110831
  Transmission Date: 20111222
  Serious: Yes (Other)
  Sender: FDA-Public Use
  Company Number: AUR-APL-2011-04909

PATIENT
  Age: 29 Year
  Sex: Female

DRUGS (9)
  1. AZITHROMYCIN [Concomitant]
  2. ETHAMBUTOL HYDROCHLORIDE [Concomitant]
  3. FLUCONAZOLE [Suspect]
     Indication: MENINGITIS CRYPTOCOCCAL
     Dosage: (400 MG, 1 D)
  4. FLUCYTOSINE [Suspect]
     Indication: PRODUCT USED FOR UNKNOWN INDICATION
  5. AMPHOTERICIN B [Suspect]
     Indication: PRODUCT USED FOR UNKNOWN INDICATION
  6. DARUNAVIR HYDRATE [Concomitant]
  7. ATOVAQUONE [Concomitant]
  8. TENOFOVIR/EMTRICITABINE(EMTRICITABINE W/TENOFOVIR) [Concomitant]
  9. RITONAVIR [Concomitant]

REACTIONS (8)
  - ANAEMIA [None]
  - RASH [None]
  - LEUKOPENIA [None]
  - PYREXIA [None]
  - HEADACHE [None]
  - CRYPTOCOCCUS TEST POSITIVE [None]
  - ALANINE AMINOTRANSFERASE INCREASED [None]
  - ASPARTATE AMINOTRANSFERASE INCREASED [None]
